FAERS Safety Report 5706801-1 (Version None)
Quarter: 2008Q2

REPORT INFORMATION
  Report Type: 
  Country: None (occurrence: None)
  Receive Date: 20080415
  Receipt Date: 20080415
  Transmission Date: 20081010
  Serious: Yes (Life-Threatening)
  Sender: FDA-Public Use
  Company Number: None

PATIENT
  Age: 14 Year
  Sex: Female
  Weight: 45.3597 kg

DRUGS (1)
  1. LAMICTAL [Suspect]
     Indication: BIPOLAR II DISORDER
     Dosage: 25 MG QD PO
     Route: 048
     Dates: start: 20080325, end: 20080410

REACTIONS (2)
  - LYMPHADENOPATHY [None]
  - RASH [None]
